FAERS Safety Report 8137859-0 (Version None)
Quarter: 2012Q1

REPORT INFORMATION
  Report Type: 
  Country: None (occurrence: None)
  Receive Date: 20120215
  Receipt Date: 20120213
  Transmission Date: 20120608
  Serious: Yes (Life-Threatening, Hospitalization)
  Sender: FDA-Public Use
  Company Number: US-BAYER-2012-014693

PATIENT
  Sex: Female

DRUGS (3)
  1. YAZ [Suspect]
  2. YASMIN [Suspect]
  3. DROSPIRENONE AND ETHINYL ESTRADIOL [Suspect]

REACTIONS (6)
  - SYSTOLIC DYSFUNCTION [None]
  - VENTRICULAR TACHYCARDIA [None]
  - ANXIETY [None]
  - FEAR [None]
  - MYOCARDIAL INFARCTION [None]
  - ANHEDONIA [None]
